FAERS Safety Report 25725811 (Version 1)
Quarter: 2025Q3

REPORT INFORMATION
  Report Type: Spontaneous
  Country: US (occurrence: None)
  Receive Date: 20250823
  Receipt Date: 20250823
  Transmission Date: 20251020
  Serious: No
  Sender: FDA-CTU
  Company Number: None

PATIENT
  Age: 69 Year
  Sex: Female

DRUGS (1)
  1. CYLTEZO [Suspect]
     Active Substance: ADALIMUMAB-ADBM
     Indication: Rheumatoid arthritis
     Dosage: FREQUENCY : EVERY OTHER WEEK;?
     Route: 058
     Dates: start: 20250427, end: 20250817

REACTIONS (7)
  - Rash [None]
  - Hand dermatitis [None]
  - Pustular psoriasis [None]
  - Drug ineffective [None]
  - Therapy cessation [None]
  - Wheezing [None]
  - Swelling [None]

NARRATIVE: CASE EVENT DATE: 20250801
